FAERS Safety Report 4612731-9 (Version None)
Quarter: 2005Q1

REPORT INFORMATION
  Report Type: 
  Country: None (occurrence: None)
  Receive Date: 20050318
  Receipt Date: 20050310
  Transmission Date: 20050727
  Serious: Yes (Hospitalization)
  Sender: FDA-Public Use
  Company Number: CA-MERCK-0503CAN00076

PATIENT
  Age: 4 Month
  Sex: Male

DRUGS (1)
  1. DECADRON [Suspect]
     Indication: LARYNGEAL STENOSIS
     Route: 065

REACTIONS (2)
  - VENTRICULAR DYSFUNCTION [None]
  - VENTRICULAR HYPERTROPHY [None]
